FAERS Safety Report 23397305 (Version 1)
Quarter: 2024Q1

REPORT INFORMATION
  Report Type: Spontaneous
  Country: US (occurrence: US)
  Receive Date: 20240112
  Receipt Date: 20240112
  Transmission Date: 20240409
  Serious: No
  Sender: FDA-Public Use
  Company Number: US-ALVOGEN-2023092087

PATIENT
  Age: 66 Year
  Sex: Male
  Weight: 79 kg

DRUGS (14)
  1. DEXAMETHASONE [Suspect]
     Active Substance: DEXAMETHASONE
     Indication: Product used for unknown indication
     Dosage: STRENGTH: 4 MG?INDICATED WITH REVLIMID.
     Route: 048
     Dates: start: 20230221
  2. LENALIDOMIDE [Suspect]
     Active Substance: LENALIDOMIDE
     Indication: Plasma cell myeloma
     Dosage: EXPIRATION DATE: 31-JAN-2024?STRENGTH: 25 MG?FREQUENCY: 21/28 CYCLE 1 DAILY
     Route: 048
     Dates: start: 20221104
  3. DARZALEX [Concomitant]
     Active Substance: DARATUMUMAB
     Indication: Product used for unknown indication
  4. ASPIRIN [Concomitant]
     Active Substance: ASPIRIN
     Indication: Product used for unknown indication
     Dosage: STRENGTH: 81 MG; QD?DELAYED RELEASE
     Route: 048
     Dates: start: 20220725
  5. BIDIL [Concomitant]
     Active Substance: HYDRALAZINE HYDROCHLORIDE\ISOSORBIDE DINITRATE
     Indication: Product used for unknown indication
     Dosage: STRENGTH: 20-37.5 MG; TID
     Route: 048
     Dates: start: 20220725
  6. BRIMONIDINE TARTRATE [Concomitant]
     Active Substance: BRIMONIDINE TARTRATE
     Indication: Product used for unknown indication
     Dosage: STRENGTH: 0.2%; BID TO BOTH EYES
     Route: 047
     Dates: start: 20220725
  7. CARVEDILOL [Concomitant]
     Active Substance: CARVEDILOL
     Indication: Product used for unknown indication
     Dosage: QD
     Route: 048
     Dates: start: 20220725
  8. VITAMINS [Concomitant]
     Active Substance: VITAMINS
     Indication: Product used for unknown indication
     Dosage: QD
     Route: 048
     Dates: start: 20220725
  9. Dorzolamide HCl-Timolol Mal [Concomitant]
     Indication: Product used for unknown indication
     Dosage: STRENGTH: 22.3-6.8; BID TO BOTH EYES
     Route: 047
     Dates: start: 20220725
  10. ENTRESTO [Concomitant]
     Active Substance: SACUBITRIL\VALSARTAN
     Indication: Product used for unknown indication
     Dosage: STRENGTH: 97-103 MG, BID
     Route: 048
     Dates: start: 20220725
  11. FUROSEMIDE [Concomitant]
     Active Substance: FUROSEMIDE
     Indication: Product used for unknown indication
     Dosage: STRENGTH: 20 MG, QD
     Route: 048
     Dates: start: 20220725
  12. LATANOPROST [Concomitant]
     Active Substance: LATANOPROST
     Indication: Product used for unknown indication
     Dosage: STRENGTH: 0.005%; QHS TO BOTH EYES
     Route: 047
     Dates: start: 20220725
  13. SPIRONOLACTONE [Concomitant]
     Active Substance: SPIRONOLACTONE
     Indication: Product used for unknown indication
     Dosage: STRENGTH: 25 MG/15; ORAL QD
     Route: 048
     Dates: start: 20220725
  14. PILOCARPINE HYDROCHLORIDE [Concomitant]
     Active Substance: PILOCARPINE HYDROCHLORIDE
     Indication: Product used for unknown indication
     Dosage: STRENGTH: 1%; TID TO BOTH EYES
     Route: 047
     Dates: start: 20220725

REACTIONS (3)
  - Abdominal discomfort [Not Recovered/Not Resolved]
  - Diarrhoea [Not Recovered/Not Resolved]
  - Off label use [Unknown]

NARRATIVE: CASE EVENT DATE: 20221104
